FAERS Safety Report 7636130-0 (Version None)
Quarter: 2011Q3

REPORT INFORMATION
  Report Type: 
  Country: None (occurrence: None)
  Receive Date: 20110726
  Receipt Date: 20110718
  Transmission Date: 20111222
  Serious: Yes (Death)
  Sender: FDA-Public Use
  Company Number: US-ACTELION-A-US2011-49749

PATIENT

DRUGS (2)
  1. TRACLEER [Suspect]
     Indication: PULMONARY ARTERIAL HYPERTENSION
     Dosage: UNK
     Route: 048
     Dates: start: 20090508, end: 20110504
  2. COUMADIN [Concomitant]

REACTIONS (4)
  - INFLUENZA [None]
  - RESPIRATORY FAILURE [None]
  - PNEUMONIA [None]
  - SEPSIS [None]
